FAERS Safety Report 20375878 (Version 1)
Quarter: 2022Q1

REPORT INFORMATION
  Report Type: Spontaneous
  Country: CA (occurrence: CA)
  Receive Date: 20220125
  Receipt Date: 20220125
  Transmission Date: 20220423
  Serious: Yes (Other)
  Sender: FDA-Public Use
  Company Number: None

PATIENT
  Age: 54 Year
  Sex: Female

DRUGS (6)
  1. DOCETAXEL [Suspect]
     Active Substance: DOCETAXEL
     Indication: Uterine cancer
     Dosage: CYCLICAL
     Route: 042
  2. GEMCITABINE HYDROCHLORIDE [Suspect]
     Active Substance: GEMCITABINE HYDROCHLORIDE
     Indication: Sarcoma uterus
     Dosage: CYCLICAL
     Route: 042
  3. DEXAMETHASONE [Concomitant]
     Active Substance: DEXAMETHASONE
     Indication: Premedication
     Route: 048
  4. DIPHENHYDRAMINE [Concomitant]
     Active Substance: DIPHENHYDRAMINE
     Indication: Premedication
     Route: 048
  5. PROCHLORPERAZINE [Concomitant]
     Active Substance: PROCHLORPERAZINE
     Indication: Premedication
     Route: 048
  6. GEMCITABINE [Concomitant]
     Active Substance: GEMCITABINE
     Indication: Sarcoma uterus
     Route: 042

REACTIONS (18)
  - Dermatitis bullous [Recovered/Resolved]
  - Infusion related reaction [Recovered/Resolved]
  - Blister [Recovered/Resolved]
  - Chest discomfort [Recovered/Resolved]
  - Dysaesthesia [Recovered/Resolved]
  - Dyspnoea [Recovered/Resolved]
  - Erythema [Recovered/Resolved]
  - Extravasation [Recovered/Resolved]
  - Feeling hot [Recovered/Resolved]
  - Flushing [Recovered/Resolved]
  - Injection site vesicles [Recovered/Resolved]
  - Neutropenia [Recovered/Resolved]
  - Oedema blister [Recovered/Resolved]
  - Pain [Recovered/Resolved]
  - Post inflammatory pigmentation change [Recovered/Resolved]
  - Urticaria [Recovered/Resolved]
  - Dyspnoea exertional [Unknown]
  - Off label use [Unknown]
